FAERS Safety Report 5418403-5 (Version None)
Quarter: 2007Q3

REPORT INFORMATION
  Report Type: 
  Country: None (occurrence: None)
  Receive Date: 20070718
  Receipt Date: 20060612
  Transmission Date: 20080115
  Serious: Yes (Hospitalization, Other)
  Sender: FDA-Public Use
  Company Number: 2005166071

PATIENT
  Age: 57 Year
  Sex: Female
  Weight: 77.1115 kg

DRUGS (6)
  1. CELEBREX [Suspect]
     Indication: HYPOAESTHESIA
  2. CELEBREX [Suspect]
     Indication: MUSCULOSKELETAL STIFFNESS
  3. CELEBREX [Suspect]
     Indication: PAIN
  4. VIOXX [Suspect]
     Indication: HYPOAESTHESIA
     Dates: start: 20011220
  5. VIOXX [Suspect]
     Indication: MUSCULOSKELETAL STIFFNESS
     Dates: start: 20011220
  6. VIOXX [Suspect]
     Indication: PAIN
     Dates: start: 20011220

REACTIONS (2)
  - CARDIAC FAILURE CONGESTIVE [None]
  - CEREBROVASCULAR ACCIDENT [None]
